FAERS Safety Report 7086362-8 (Version None)
Quarter: 2010Q4

REPORT INFORMATION
  Report Type: 
  Country: None (occurrence: None)
  Receive Date: 20101105
  Receipt Date: 20100917
  Transmission Date: 20110411
  Serious: No
  Sender: FDA-Public Use
  Company Number: US-BAYER-201021581BCC

PATIENT
  Sex: Male

DRUGS (1)
  1. ALEVE (CAPLET) [Suspect]
     Indication: SCIATICA
     Dosage: AS USED: 440/1100 MG  UNIT DOSE: 220 MG
     Route: 048
     Dates: start: 20100915

REACTIONS (1)
  - SCIATICA [None]
